FAERS Safety Report 23350803 (Version 10)
Quarter: 2025Q2

REPORT INFORMATION
  Report Type: Spontaneous
  Country: US (occurrence: US)
  Receive Date: 20231229
  Receipt Date: 20250505
  Transmission Date: 20250717
  Serious: Yes (Other)
  Sender: PFIZER
  Company Number: US-PFIZER INC-PV202300204236

PATIENT
  Age: 46 Year
  Sex: Female

DRUGS (19)
  1. IBRANCE [Suspect]
     Active Substance: PALBOCICLIB
     Indication: Breast cancer female
     Route: 048
     Dates: start: 20231125, end: 20250428
  2. IBRANCE [Suspect]
     Active Substance: PALBOCICLIB
     Dates: start: 202408
  3. IBRANCE [Suspect]
     Active Substance: PALBOCICLIB
     Dates: end: 202411
  4. IBRANCE [Suspect]
     Active Substance: PALBOCICLIB
     Dates: start: 202501, end: 202503
  5. ABRAXANE [Concomitant]
     Active Substance: PACLITAXEL
  6. ACYCLOVIR [Concomitant]
     Active Substance: ACYCLOVIR
  7. ARIMIDEX [Concomitant]
     Active Substance: ANASTROZOLE
  8. DEXAMETHASONE [Concomitant]
     Active Substance: DEXAMETHASONE
  9. DICLOFENAC [Concomitant]
     Active Substance: DICLOFENAC
  10. LUPRON DEPOT [Concomitant]
     Active Substance: LEUPROLIDE ACETATE
  11. OMEPRAZOLE [Concomitant]
     Active Substance: OMEPRAZOLE
  12. ONDANSETRON [Concomitant]
     Active Substance: ONDANSETRON
  13. OXYCODONE AND ACETAMINOPHEN [Concomitant]
     Active Substance: ACETAMINOPHEN\OXYCODONE HYDROCHLORIDE
  14. PROCHLORPERAZINE [Concomitant]
     Active Substance: PROCHLORPERAZINE
  15. VITAMIN C [Concomitant]
     Active Substance: ASCORBIC ACID
  16. VITAMIN C [Concomitant]
     Active Substance: ASCORBIC ACID
  17. VITAMIN D3 [Concomitant]
     Active Substance: CHOLECALCIFEROL
  18. XGEVA [Concomitant]
     Active Substance: DENOSUMAB
  19. ZINC [Concomitant]
     Active Substance: ZINC

REACTIONS (15)
  - Neutropenia [Unknown]
  - Product dose omission in error [Unknown]
  - Abdominal pain [Not Recovered/Not Resolved]
  - Hot flush [Unknown]
  - Anxiety [Unknown]
  - Fatigue [Not Recovered/Not Resolved]
  - Stomatitis [Not Recovered/Not Resolved]
  - Epistaxis [Not Recovered/Not Resolved]
  - Alopecia [Not Recovered/Not Resolved]
  - Pallor [Not Recovered/Not Resolved]
  - Pyrexia [Unknown]
  - Infection [Unknown]
  - White blood cell count decreased [Unknown]
  - Monocyte count abnormal [Not Recovered/Not Resolved]
  - Drug intolerance [Recovered/Resolved]

NARRATIVE: CASE EVENT DATE: 20250329
